FAERS Safety Report 5616683-4 (Version None)
Quarter: 2008Q1

REPORT INFORMATION
  Report Type: 
  Country: None (occurrence: None)
  Receive Date: 20080207
  Receipt Date: 20080129
  Transmission Date: 20080703
  Serious: Yes (Other)
  Sender: FDA-Public Use
  Company Number: CA-JNJFOC-20080107350

PATIENT
  Age: 27 Year
  Sex: Male

DRUGS (5)
  1. REMICADE [Suspect]
     Dosage: WEEK 6, 20ML/HR.
  2. REMICADE [Suspect]
     Dosage: WEEK 2
  3. REMICADE [Suspect]
     Indication: DRUG USE FOR UNKNOWN INDICATION
     Dosage: WEEK 0
  4. BENADRYL [Concomitant]
     Indication: PREMEDICATION
     Route: 048
  5. ACETAMINOPHEN [Concomitant]
     Indication: PREMEDICATION

REACTIONS (12)
  - CHEST DISCOMFORT [None]
  - DYSPNOEA [None]
  - ERYTHEMA [None]
  - INFUSION RELATED REACTION [None]
  - LACRIMATION INCREASED [None]
  - OCULAR HYPERAEMIA [None]
  - OXYGEN SATURATION DECREASED [None]
  - PALPITATIONS [None]
  - RASH PRURITIC [None]
  - SPEECH DISORDER [None]
  - TACHYCARDIA [None]
  - THROAT TIGHTNESS [None]
